FAERS Safety Report 5628649-9 (Version None)
Quarter: 2008Q1

REPORT INFORMATION
  Report Type: 
  Country: None (occurrence: None)
  Receive Date: 20080214
  Receipt Date: 20080214
  Transmission Date: 20080703
  Serious: Yes (Life-Threatening, Hospitalization)
  Sender: FDA-Public Use
  Company Number: None

PATIENT
  Age: 60 Year
  Sex: Male
  Weight: 117.5 kg

DRUGS (2)
  1. MELOXICAM [Suspect]
     Indication: ARTHRALGIA
     Dosage: 15MG EVERY DAY PO
     Route: 048
     Dates: start: 20050916, end: 20080114
  2. CLOPIDOGREL [Suspect]
     Indication: STENT PLACEMENT
     Dosage: 75MG EVERY DAY PO
     Route: 048
     Dates: start: 20070406, end: 20080114

REACTIONS (3)
  - ANAEMIA [None]
  - GASTRIC HAEMORRHAGE [None]
  - HYPOTENSION [None]
